FAERS Safety Report 4434556-X (Version None)
Quarter: 2004Q3

REPORT INFORMATION
  Report Type: 
  Country: None (occurrence: None)
  Receive Date: 20040721
  Receipt Date: 20031118
  Transmission Date: 20050211
  Serious: Yes (Hospitalization)
  Sender: FDA-Public Use
  Company Number: WAES 0311USA02160

PATIENT
  Age: 77 Year
  Sex: Female

DRUGS (6)
  1. VIOXX [Suspect]
     Indication: OSTEOARTHRITIS
     Dosage: 12.5 MG/DAILY/PO
     Route: 048
  2. ADVAIR DISKUS 100/50 [Concomitant]
  3. PRINIVIL [Concomitant]
  4. PROTONIX [Concomitant]
  5. ZELNORM [Concomitant]
  6. DOXEPIN HYDROCHLORIDE [Concomitant]

REACTIONS (1)
  - HEPATIC ENZYME INCREASED [None]
